FAERS Safety Report 14611885 (Version 1)
Quarter: 2018Q1

REPORT INFORMATION
  Report Type: Spontaneous
  Country: US (occurrence: US)
  Receive Date: 20180307
  Receipt Date: 20180307
  Transmission Date: 20180509
  Serious: No
  Sender: FDA-Public Use
  Company Number: None

PATIENT
  Sex: Female
  Weight: 90 kg

DRUGS (2)
  1. WARFARIN [Suspect]
     Active Substance: WARFARIN
     Route: 048
     Dates: start: 20141008, end: 20180307
  2. WARFARIN [Suspect]
     Active Substance: WARFARIN
     Route: 048
     Dates: start: 20140808, end: 20180307

REACTIONS (2)
  - International normalised ratio decreased [None]
  - Inappropriate schedule of drug administration [None]
